FAERS Safety Report 16301550 (Version 3)
Quarter: 2019Q2

REPORT INFORMATION
  Report Type: Report from Study
  Country: US (occurrence: US)
  Receive Date: 20190511
  Receipt Date: 20190528
  Transmission Date: 20190711
  Serious: Yes (Hospitalization)
  Sender: FDA-Public Use
  Company Number: US-ROCHE-2314014

PATIENT
  Age: 75 Year
  Sex: Male

DRUGS (11)
  1. ATORVASTATIN [Concomitant]
     Active Substance: ATORVASTATIN
     Route: 065
  2. SERTRALINE [Concomitant]
     Active Substance: SERTRALINE HYDROCHLORIDE
  3. PIRFENIDONE. [Suspect]
     Active Substance: PIRFENIDONE
     Route: 048
  4. PIRFENIDONE. [Suspect]
     Active Substance: PIRFENIDONE
     Route: 048
  5. METOPROLOL. [Concomitant]
     Active Substance: METOPROLOL
  6. PIRFENIDONE. [Suspect]
     Active Substance: PIRFENIDONE
     Indication: IDIOPATHIC PULMONARY FIBROSIS
     Route: 048
     Dates: start: 20170113, end: 201905
  7. PIRFENIDONE. [Suspect]
     Active Substance: PIRFENIDONE
     Route: 048
     Dates: start: 20150526
  8. CLOPIDOGREL [Concomitant]
     Active Substance: CLOPIDOGREL BISULFATE
  9. FUROSEMIDE. [Concomitant]
     Active Substance: FUROSEMIDE
  10. OMEPRAZOLE. [Concomitant]
     Active Substance: OMEPRAZOLE
     Route: 065
  11. TRAZODONE [Concomitant]
     Active Substance: TRAZODONE HYDROCHLORIDE

REACTIONS (5)
  - Insomnia [Unknown]
  - Nausea [Recovered/Resolved]
  - Productive cough [Unknown]
  - Therapy cessation [Unknown]
  - Cough [Unknown]

NARRATIVE: CASE EVENT DATE: 201904
